FAERS Safety Report 9994342 (Version 1)
Quarter: 2014Q1

REPORT INFORMATION
  Report Type: Other
  Country: DE (occurrence: DE)
  Receive Date: 20140311
  Receipt Date: 20140311
  Transmission Date: 20141002
  Serious: Yes (Other)
  Sender: FDA-Public Use
  Company Number: DE-LUPIN PHARMACEUTICALS INC.-2014-00696

PATIENT
  Age: 29 Year
  Sex: Female
  Weight: 61 kg

DRUGS (4)
  1. SERTRALINE [Suspect]
     Indication: DEPRESSION
     Route: 048
     Dates: start: 20120407, end: 20121206
  2. LAMOTRIGIN [Suspect]
     Indication: BIPOLAR DISORDER
     Dosage: 200MG/D OR HIGHER DOSE OF 200MG/D SINCE WEEK 15
     Route: 048
     Dates: start: 20120407, end: 20121206
  3. L-THYROXINE HENNING [Concomitant]
     Indication: AUTOIMMUNE THYROIDITIS
     Route: 048
     Dates: start: 20120407, end: 20121206
  4. CORDES BPO 5 [Concomitant]
     Indication: ACNE
     Route: 003
     Dates: start: 20120407, end: 20120518

REACTIONS (3)
  - Eclampsia [Unknown]
  - Headache [Unknown]
  - Exposure during pregnancy [Unknown]
